FAERS Safety Report 8033707-8 (Version None)
Quarter: 2012Q1

REPORT INFORMATION
  Report Type: 
  Country: None (occurrence: None)
  Receive Date: 20120110
  Receipt Date: 20110517
  Transmission Date: 20120608
  Serious: Yes (Hospitalization)
  Sender: FDA-Public Use
  Company Number: US-GLAXOSMITHKLINE-A0928730A

PATIENT
  Sex: Male

DRUGS (1)
  1. AVANDIA [Suspect]
     Indication: DIABETES MELLITUS
     Route: 048

REACTIONS (6)
  - TOE AMPUTATION [None]
  - RENAL FAILURE [None]
  - FOOT AMPUTATION [None]
  - RETINAL DETACHMENT [None]
  - HYPERTENSION [None]
  - CARDIAC DISORDER [None]
